FAERS Safety Report 18560004 (Version 4)
Quarter: 2021Q3

REPORT INFORMATION
  Report Type: Report from Study
  Country: US (occurrence: US)
  Receive Date: 20201130
  Receipt Date: 20210918
  Transmission Date: 20211014
  Serious: Yes (Other)
  Sender: FDA-Public Use
  Company Number: US-SHIRE-US202006534

PATIENT
  Age: 62 Year
  Sex: Female
  Weight: 81 kg

DRUGS (3)
  1. HUMAN IMMUNOGLOBULIN; HYALURONIDASE [Suspect]
     Active Substance: HUMAN IMMUNOGLOBULIN G\HYALURONIDASE RECOMBINANT HUMAN
     Indication: PRIMARY IMMUNODEFICIENCY SYNDROME
     Dosage: 50 GRAM, MONTHLY
     Route: 065
  2. HUMAN IMMUNOGLOBULIN; HYALURONIDASE [Suspect]
     Active Substance: HUMAN IMMUNOGLOBULIN G\HYALURONIDASE RECOMBINANT HUMAN
     Indication: IMMUNODEFICIENCY
     Dosage: 50 GRAM
     Route: 065
  3. HUMAN IMMUNOGLOBULIN; HYALURONIDASE [Suspect]
     Active Substance: HUMAN IMMUNOGLOBULIN G\HYALURONIDASE RECOMBINANT HUMAN
     Dosage: 3 GRAM, Q4WEEKS
     Route: 058

REACTIONS (12)
  - Viral infection [Unknown]
  - Infusion site extravasation [Unknown]
  - Device infusion issue [Unknown]
  - Skin hypertrophy [Unknown]
  - Headache [Unknown]
  - Pulmonary fibrosis [Unknown]
  - Pneumonia [Unknown]
  - Influenza like illness [Unknown]
  - Nasopharyngitis [Unknown]
  - Costochondritis [Unknown]
  - Dizziness [Unknown]
  - Urticaria [Unknown]

NARRATIVE: CASE EVENT DATE: 20210616
